FAERS Safety Report 15793629 (Version 1)
Quarter: 2019Q1

REPORT INFORMATION
  Report Type: Spontaneous
  Country: US (occurrence: US)
  Receive Date: 20190105
  Receipt Date: 20190105
  Transmission Date: 20190417
  Serious: No
  Sender: FDA-Public Use
  Company Number: None

PATIENT
  Age: 51 Year
  Sex: Female
  Weight: 57.6 kg

DRUGS (5)
  1. 5HTP [Concomitant]
  2. PROBIOTICS [Concomitant]
     Active Substance: PROBIOTICS NOS
  3. WOMEN^S ONE A DAY VITAMIN [Concomitant]
  4. CHELATES MAGNESIUM [Concomitant]
  5. MEDICATED PAIN RELIEF PATCH [Suspect]
     Active Substance: CAMPHOR (SYNTHETIC)\MENTHOL\METHYL SALICYLATE
     Indication: MUSCULOSKELETAL PAIN
     Dosage: ?          QUANTITY:1 PATCH(ES);?
     Route: 062
     Dates: start: 20190104, end: 20190105

REACTIONS (2)
  - Application site warmth [None]
  - Application site burn [None]

NARRATIVE: CASE EVENT DATE: 20190104
